FAERS Safety Report 5466228-7 (Version None)
Quarter: 2007Q3

REPORT INFORMATION
  Report Type: 
  Country: None (occurrence: None)
  Receive Date: 20070919
  Receipt Date: 20070905
  Transmission Date: 20080115
  Serious: Yes (Death, Hospitalization)
  Sender: FDA-Public Use
  Company Number: DSJ-2007-04516

PATIENT
  Age: 75 Year
  Sex: Female
  Weight: 60 kg

DRUGS (3)
  1. OLMESARTAN MEDOXOMIL [Suspect]
     Indication: HYPERTENSION
     Dosage: 20 MG (20 MG, 1 IN 1 D), PER ORAL
     Route: 048
     Dates: start: 20060328
  2. ZENASPIRIN [Suspect]
     Indication: HYPERTENSION
     Dosage: 1 (1 IN 1 D), PER ORAL
     Route: 048
     Dates: start: 20060326
  3. AMLODIPINE [Suspect]
     Dosage: 1 (1 IN 1 D), PER ORAL
     Route: 048
     Dates: start: 20060326

REACTIONS (1)
  - HEPATITIS ACUTE [None]
